FAERS Safety Report 6019615-2 (Version None)
Quarter: 2008Q4

REPORT INFORMATION
  Report Type: 
  Country: None (occurrence: None)
  Receive Date: 20081224
  Receipt Date: 20081218
  Transmission Date: 20090506
  Serious: Yes (Hospitalization)
  Sender: FDA-Public Use
  Company Number: US-GENENTECH-272614

PATIENT
  Sex: Male
  Weight: 108 kg

DRUGS (27)
  1. RITUXIMAB [Suspect]
     Indication: NON-HODGKIN'S LYMPHOMA
     Dosage: 375 MG/M2, UNK
     Route: 065
     Dates: start: 20080903
  2. VELCADE [Suspect]
     Indication: NON-HODGKIN'S LYMPHOMA
     Dosage: 1.3 MG/M2, UNK
     Route: 042
     Dates: start: 20080903
  3. BENDAMUSTINE [Suspect]
     Indication: NON-HODGKIN'S LYMPHOMA
     Dosage: 90 MG/M2, UNK
     Route: 042
     Dates: start: 20080903
  4. ALBUTEROL [Concomitant]
     Indication: DRUG USE FOR UNKNOWN INDICATION
  5. PRIMIDONE [Concomitant]
     Indication: DRUG USE FOR UNKNOWN INDICATION
  6. VYTORIN [Concomitant]
     Indication: DRUG USE FOR UNKNOWN INDICATION
  7. POTASSIUM IODIDE [Concomitant]
     Indication: DRUG USE FOR UNKNOWN INDICATION
  8. PERCOCET [Concomitant]
     Indication: DRUG USE FOR UNKNOWN INDICATION
  9. EFFEXOR [Concomitant]
     Indication: DRUG USE FOR UNKNOWN INDICATION
  10. ASPIRIN [Concomitant]
     Indication: DRUG USE FOR UNKNOWN INDICATION
  11. COREG [Concomitant]
     Indication: DRUG USE FOR UNKNOWN INDICATION
  12. NORVASC [Concomitant]
     Indication: DRUG USE FOR UNKNOWN INDICATION
  13. PHENERGAN HCL [Concomitant]
     Indication: DRUG USE FOR UNKNOWN INDICATION
  14. ZOFRAN [Concomitant]
     Indication: DRUG USE FOR UNKNOWN INDICATION
  15. REGLAN [Concomitant]
     Indication: DRUG USE FOR UNKNOWN INDICATION
  16. BACTRIM [Concomitant]
     Indication: DRUG USE FOR UNKNOWN INDICATION
  17. BENADRYL [Concomitant]
     Indication: DRUG USE FOR UNKNOWN INDICATION
  18. VITAMIN B [Concomitant]
     Indication: DRUG USE FOR UNKNOWN INDICATION
  19. IMODIUM [Concomitant]
     Indication: DRUG USE FOR UNKNOWN INDICATION
  20. LUNESTA [Concomitant]
     Indication: DRUG USE FOR UNKNOWN INDICATION
  21. COZAAR [Concomitant]
     Indication: DRUG USE FOR UNKNOWN INDICATION
  22. JANUMET [Concomitant]
     Indication: DRUG USE FOR UNKNOWN INDICATION
  23. GLIPIZIDE [Concomitant]
     Indication: DRUG USE FOR UNKNOWN INDICATION
  24. AVELOX [Concomitant]
     Indication: DRUG USE FOR UNKNOWN INDICATION
  25. ALPRAZOLAM [Concomitant]
     Indication: DRUG USE FOR UNKNOWN INDICATION
  26. PROTONIX [Concomitant]
     Indication: DRUG USE FOR UNKNOWN INDICATION
  27. NITROGLYCERIN [Concomitant]
     Indication: DRUG USE FOR UNKNOWN INDICATION

REACTIONS (2)
  - ASTHENIA [None]
  - ORTHOSTATIC HYPOTENSION [None]
